FAERS Safety Report 8736123 (Version 2)
Quarter: 2012Q4

REPORT INFORMATION
  Report Type: 
  Country: AU (occurrence: AU)
  Receive Date: 20120822
  Receipt Date: 20120831
  Transmission Date: 20130627
  Serious: Yes (Death)
  Sender: FDA-Public Use
  Company Number: AU-PFIZER INC-2012203590

PATIENT
  Age: 69 Year
  Sex: Male

DRUGS (6)
  1. SOMAC [Suspect]
     Dosage: 40 mg, daily
     Route: 048
     Dates: start: 201205, end: 20120619
  2. DIAFORMIN [Concomitant]
     Dosage: UNK
  3. LASIX [Concomitant]
     Dosage: UNK
  4. NOTEN [Concomitant]
     Dosage: UNK
  5. SERETIDE [Concomitant]
     Dosage: UNK
  6. ALPRAZOLAM [Concomitant]
     Dosage: UNK

REACTIONS (1)
  - Toxic epidermal necrolysis [Fatal]
